FAERS Safety Report 6442360-6 (Version None)
Quarter: 2009Q4

REPORT INFORMATION
  Report Type: 
  Country: None (occurrence: None)
  Receive Date: 20091112
  Receipt Date: 20091102
  Transmission Date: 20100525
  Serious: Yes (Hospitalization)
  Sender: FDA-Public Use
  Company Number: UF#:062750-2009-0018

PATIENT
  Age: 63 Year
  Sex: Female
  Weight: 49.8957 kg

DRUGS (2)
  1. ZICAM SEASONAL ALLERGY SPRAY [Suspect]
     Indication: SEASONAL ALLERGY
     Dosage: 4X DAY
     Route: 055
     Dates: start: 20080101
  2. MARPLAN [Concomitant]

REACTIONS (3)
  - BLOOD PRESSURE INCREASED [None]
  - NERVOUSNESS [None]
  - PAROSMIA [None]
